FAERS Safety Report 6370001-5 (Version None)
Quarter: 2009Q3

REPORT INFORMATION
  Report Type: 
  Country: None (occurrence: None)
  Receive Date: 20090923
  Receipt Date: 20070403
  Transmission Date: 20100115
  Serious: Yes (Other)
  Sender: FDA-Public Use
  Company Number: US-ASTRAZENECA-2006UW06857

PATIENT
  Age: 49 Year
  Sex: Female
  Weight: 76.7 kg

DRUGS (21)
  1. SEROQUEL [Suspect]
     Indication: BIPOLAR DISORDER
     Route: 048
     Dates: start: 19980706
  2. SEROQUEL [Suspect]
     Indication: ANXIETY
     Route: 048
     Dates: start: 19980706
  3. SEROQUEL [Suspect]
     Route: 048
     Dates: start: 19980101, end: 20030101
  4. SEROQUEL [Suspect]
     Route: 048
     Dates: start: 19980101, end: 20030101
  5. RISPERDAL [Concomitant]
     Dates: start: 20020101
  6. RISPERDAL [Concomitant]
     Dosage: 0.5 MG-4 MG
     Route: 048
  7. ZYPREXA [Concomitant]
     Dates: start: 19990101, end: 20000101
  8. TRAZODONE HCL [Concomitant]
     Dates: start: 19980101
  9. MELLARIL [Concomitant]
     Dates: start: 19990101
  10. DEPAKOTE [Concomitant]
     Dosage: 250 MG-500 MG
     Route: 048
  11. PAXIL [Concomitant]
     Route: 048
  12. DESYREL [Concomitant]
     Route: 048
  13. LIPITOR [Concomitant]
     Dosage: 10 MG-20 MG
     Route: 048
  14. LISINOPRIL [Concomitant]
     Dosage: 10 MG-20 MG
     Route: 048
  15. LAMICTAL [Concomitant]
     Dosage: 25 MG-200 MG
     Route: 048
  16. ATIVAN [Concomitant]
     Route: 048
  17. WELLBUTRIN [Concomitant]
     Route: 048
  18. RESTORIL [Concomitant]
  19. INSULIN [Concomitant]
     Dosage: 2-4 UNITS
     Route: 058
  20. GLIPIZIDE [Concomitant]
     Route: 048
  21. GLUCOPHAGE [Concomitant]
     Dosage: 500 MG-1500 MG
     Route: 048

REACTIONS (6)
  - BLOOD CHOLESTEROL INCREASED [None]
  - DIABETES MELLITUS [None]
  - DIABETIC KETOACIDOSIS [None]
  - HYPERGLYCAEMIA [None]
  - HYPERTRIGLYCERIDAEMIA [None]
  - TYPE 1 DIABETES MELLITUS [None]
